FAERS Safety Report 25663598 (Version 5)
Quarter: 2025Q4

REPORT INFORMATION
  Report Type: Report from Study
  Country: US (occurrence: US)
  Receive Date: 20250811
  Receipt Date: 20251126
  Transmission Date: 20260117
  Serious: Yes (Hospitalization)
  Sender: ELI LILLY AND COMPANY
  Company Number: US-ELI_LILLY_AND_COMPANY-US202508002397

PATIENT
  Age: 78 Year
  Sex: Female
  Weight: 68 kg

DRUGS (14)
  1. KISUNLA [Suspect]
     Active Substance: DONANEMAB-AZBT
     Indication: Cognitive disorder
     Dosage: 700 MG, MONTHLY (1/M) (1ST INFUSION)
     Route: 042
     Dates: start: 20250508
  2. KISUNLA [Suspect]
     Active Substance: DONANEMAB-AZBT
     Dosage: 700 MG, MONTHLY (1/M)  (2ND INFUSION)
     Route: 042
     Dates: start: 20250606
  3. KISUNLA [Suspect]
     Active Substance: DONANEMAB-AZBT
     Dosage: 700 MG, MONTHLY (1/M) (3RD INFUSION)
     Route: 042
     Dates: start: 20250703
  4. KISUNLA [Suspect]
     Active Substance: DONANEMAB-AZBT
     Dosage: 1400 MG, MONTHLY (1/M)
     Route: 042
     Dates: start: 20251030
  5. ASPIRIN [Concomitant]
     Active Substance: ASPIRIN
     Indication: Product used for unknown indication
     Dosage: 81 MG, DAILY
     Route: 048
     Dates: start: 20230905
  6. ALBUTEROL SULFATE [Concomitant]
     Active Substance: ALBUTEROL SULFATE
     Indication: Product used for unknown indication
     Dosage: 2 PUFFS EVERY 6 HOURS, PRN
     Route: 048
     Dates: start: 20241107
  7. ATORVASTATIN [Concomitant]
     Active Substance: ATORVASTATIN
     Indication: Product used for unknown indication
     Dosage: 20 MG, DAILY
     Route: 048
     Dates: start: 20241021
  8. DONEPEZIL [Concomitant]
     Active Substance: DONEPEZIL
     Indication: Product used for unknown indication
     Dosage: 5 MG, DAILY
     Route: 048
     Dates: start: 20250507
  9. EZETIMIBE [Concomitant]
     Active Substance: EZETIMIBE
     Indication: Product used for unknown indication
     Dosage: 10 MG, DAILY
     Route: 048
     Dates: start: 20250516
  10. LEVETIRACETAM [Concomitant]
     Active Substance: LEVETIRACETAM
     Indication: Seizure
     Dosage: 2 DOSAGE FORM, DAILY
     Route: 048
     Dates: start: 20250608
  11. LEVOTHYROXINE [Concomitant]
     Active Substance: LEVOTHYROXINE
     Indication: Product used for unknown indication
     Dosage: 88 UG, DAILY
     Route: 048
     Dates: start: 20250530
  12. LORATADINE [Concomitant]
     Active Substance: LORATADINE
     Indication: Product used for unknown indication
     Dosage: 10 MG, DAILY
     Route: 048
     Dates: start: 20250211
  13. METHYLCOBALAMIN [Concomitant]
     Active Substance: METHYLCOBALAMIN
     Indication: Product used for unknown indication
     Dosage: 1000 UG, DAILY
     Route: 060
     Dates: start: 20220326
  14. VITAMINS [Concomitant]
     Active Substance: VITAMINS
     Indication: Product used for unknown indication
     Dosage: 1 DOSAGE FORM, DAILY
     Route: 065
     Dates: start: 20220326

REACTIONS (5)
  - Seizure [Recovered/Resolved]
  - Cerebral disorder [Unknown]
  - Feeling abnormal [Recovered/Resolved]
  - Memory impairment [Recovered/Resolved]
  - Amyloid related imaging abnormality-oedema/effusion [Recovered/Resolved]

NARRATIVE: CASE EVENT DATE: 20250722
